FAERS Safety Report 10171606 (Version 1)
Quarter: 2014Q2

REPORT INFORMATION
  Report Type: Spontaneous
  Country: US (occurrence: None)
  Receive Date: 20140428
  Receipt Date: 20140428
  Transmission Date: 20141212
  Serious: No
  Sender: FDA-Public Use
  Company Number: PHEH2013US026029

PATIENT
  Sex: Female

DRUGS (8)
  1. GILENYA [Suspect]
     Indication: MULTIPLE SCLEROSIS
     Route: 048
     Dates: start: 20120228
  2. LYRICA (PREGABALIN) [Concomitant]
  3. LEVOTHYROXINE (LEVOTHYROXINE) [Concomitant]
  4. FLUOXETINE HYDROCHLORIDE) (FLUOXETINE HYDROCHLORIDE) [Concomitant]
  5. CYCLOBENZAPRINE (CYCLOPBENZAPRINE) [Concomitant]
  6. VITAMIN D (ERGOCALCIFEROL) [Concomitant]
  7. VITAMIN C (ASCORBIC ACID) [Concomitant]
  8. PRENATAL WITH FOLIC ACID /02284401/ (ASCORBIC ACD, CALCIUM, ERGOCALCIFEROL, FOLIC ACID, IRON, NICOTINAMIDE, PYRIDOXINE HYDROCHLORIDE, RETINOL, RIBOFLAVIN, THIAMINE HYDROCHLORIDE, TIRATRICOL, TOCOPHERYL ACETATE) [Concomitant]

REACTIONS (6)
  - Skin discolouration [None]
  - Dry mouth [None]
  - Nasal discomfort [None]
  - Limb discomfort [None]
  - Weight increased [None]
  - Paraesthesia [None]
